FAERS Safety Report 8557975-9 (Version None)
Quarter: 2012Q3

REPORT INFORMATION
  Report Type: 
  Country: None (occurrence: None)
  Receive Date: 20120801
  Receipt Date: 20120723
  Transmission Date: 20120928
  Serious: Yes (Disabling, Other)
  Sender: FDA-Public Use
  Company Number: US-MSD-1205USA02822

PATIENT

DRUGS (7)
  1. FOSAMAX [Suspect]
     Indication: OSTEOPOROSIS
     Dosage: 10 MG, UNK
     Route: 048
     Dates: start: 19990625
  2. CYANOCOBALAMIN [Concomitant]
     Dosage: UNK
     Dates: start: 19970101
  3. CORTICOSTEROIDS (UNSPECIFIED) [Concomitant]
     Dosage: UNK
     Dates: start: 19870101, end: 20090601
  4. VITAMIN B (UNSPECIFIED) [Concomitant]
     Dosage: UNK
     Dates: start: 19970101
  5. CALCIUM (UNSPECIFIED) [Concomitant]
     Indication: OSTEOPOROSIS
     Dosage: 1500 MG, QD
     Dates: start: 19970101
  6. VITAMIN D (UNSPECIFIED) [Concomitant]
     Dosage: UNK
     Dates: start: 19970101
  7. FOLIC ACID [Concomitant]
     Dosage: UNK
     Dates: start: 19970101

REACTIONS (9)
  - MUSCLE STRAIN [None]
  - OSTEOPENIA [None]
  - FEMUR FRACTURE [None]
  - OSTEOPOROSIS [None]
  - RIB FRACTURE [None]
  - OSTEOARTHRITIS [None]
  - COSTOCHONDRITIS [None]
  - STRESS FRACTURE [None]
  - LOW TURNOVER OSTEOPATHY [None]
